FAERS Safety Report 19137843 (Version 1)
Quarter: 2021Q2

REPORT INFORMATION
  Report Type: Report from Study
  Country: US (occurrence: US)
  Receive Date: 20210415
  Receipt Date: 20210415
  Transmission Date: 20210717
  Serious: No
  Sender: FDA-Public Use
  Company Number: US-AGIOS-2104US02667

PATIENT

DRUGS (3)
  1. TIBSOVO [Suspect]
     Active Substance: IVOSIDENIB
     Indication: HEPATIC CANCER
  2. TIBSOVO [Suspect]
     Active Substance: IVOSIDENIB
     Indication: CHOLANGIOCARCINOMA
  3. TIBSOVO [Suspect]
     Active Substance: IVOSIDENIB
     Indication: METASTASES TO LUNG
     Dosage: 250 MILLIGRAM, 2 TABLETS (500 MG) DAILY
     Route: 048
     Dates: start: 20210325

REACTIONS (3)
  - Product administration error [Unknown]
  - Off label use [Unknown]
  - Diarrhoea [Unknown]
